FAERS Safety Report 16839216 (Version 1)
Quarter: 2019Q3

REPORT INFORMATION
  Report Type: Report from Study
  Country: US (occurrence: US)
  Receive Date: 20190923
  Receipt Date: 20190923
  Transmission Date: 20191005
  Serious: No
  Sender: FDA-Public Use
  Company Number: PHEH2019US038837

PATIENT
  Sex: Female

DRUGS (1)
  1. ENTRESTO [Suspect]
     Active Substance: SACUBITRIL\VALSARTAN
     Indication: MITRAL VALVE REPLACEMENT
     Dosage: 1 DF (24 MG/26 MG), BID
     Route: 048

REACTIONS (5)
  - Somnolence [Unknown]
  - Hallucination [Unknown]
  - Decreased immune responsiveness [Unknown]
  - Fatigue [Unknown]
  - Product use in unapproved indication [Unknown]
